FAERS Safety Report 16084407 (Version 1)
Quarter: 2019Q1

REPORT INFORMATION
  Report Type: Report from Study
  Country: MX (occurrence: MX)
  Receive Date: 20190318
  Receipt Date: 20190318
  Transmission Date: 20190418
  Serious: Yes (Death)
  Sender: FDA-Public Use
  Company Number: PHHY2019MX060045

PATIENT
  Age: 15 Year
  Sex: Male
  Weight: 53 kg

DRUGS (1)
  1. REVOLADE [Suspect]
     Active Substance: ELTROMBOPAG
     Indication: PLATELET COUNT DECREASED
     Dosage: 2 DF, QD
     Route: 048

REACTIONS (2)
  - Central nervous system infection [Fatal]
  - Viral infection [Fatal]

NARRATIVE: CASE EVENT DATE: 20180720
